FAERS Safety Report 26066357 (Version 1)
Quarter: 2025Q4

REPORT INFORMATION
  Report Type: Spontaneous
  Country: US (occurrence: US)
  Receive Date: 20251119
  Receipt Date: 20251119
  Transmission Date: 20260118
  Serious: Yes (Other)
  Sender: BLUEPRINT MEDICINES
  Company Number: US-Blueprint Medicines Corporation-2025-AER-02477

PATIENT

DRUGS (1)
  1. AYVAKIT [Suspect]
     Active Substance: AVAPRITINIB
     Indication: Indolent systemic mastocytosis
     Route: 065

REACTIONS (9)
  - Hypokalaemia [Unknown]
  - Cerebrospinal fluid leakage [Unknown]
  - Autoimmune disorder [Unknown]
  - Anaphylactic reaction [Unknown]
  - Meningitis aseptic [Unknown]
  - Pneumonia [Unknown]
  - Bone pain [Unknown]
  - Nausea [Unknown]
  - Photosensitivity reaction [Unknown]
